FAERS Safety Report 7089445-1 (Version None)
Quarter: 2010Q4

REPORT INFORMATION
  Report Type: 
  Country: None (occurrence: None)
  Receive Date: 20101108
  Receipt Date: 20101103
  Transmission Date: 20110411
  Serious: Yes (Death, Hospitalization, Other)
  Sender: FDA-Public Use
  Company Number: DE-CELGENEUS-062-50794-10101374

PATIENT
  Age: 72 Year
  Sex: Male

DRUGS (3)
  1. VIDAZA [Suspect]
     Indication: MYELODYSPLASTIC SYNDROME
     Route: 058
     Dates: start: 20070326, end: 20070330
  2. VIDAZA [Suspect]
     Route: 058
     Dates: start: 20070502, end: 20070506
  3. VIDAZA [Suspect]
     Route: 058
     Dates: start: 20071022, end: 20071026

REACTIONS (7)
  - ANAL ABSCESS [None]
  - FEBRILE NEUTROPENIA [None]
  - INFECTION [None]
  - LUNG INFILTRATION [None]
  - PANCYTOPENIA [None]
  - PYREXIA [None]
  - SEPSIS [None]
